FAERS Safety Report 21868536 (Version 1)
Quarter: 2023Q1

REPORT INFORMATION
  Report Type: Report from Study
  Country: US (occurrence: US)
  Receive Date: 20230117
  Receipt Date: 20230117
  Transmission Date: 20230417
  Serious: No
  Sender: FDA-Public Use
  Company Number: US-ABBVIE-4265252

PATIENT
  Sex: Male

DRUGS (1)
  1. HUMIRA [Suspect]
     Active Substance: ADALIMUMAB
     Indication: Psoriasis
     Dosage: UNKNOWN DEVICE
     Route: 058
     Dates: start: 20200329

REACTIONS (3)
  - Bronchitis [Unknown]
  - Dyspnoea [Unknown]
  - Respiratory tract congestion [Unknown]
